FAERS Safety Report 8510077-X (Version None)
Quarter: 2012Q3

REPORT INFORMATION
  Report Type: 
  Country: None (occurrence: None)
  Receive Date: 20120713
  Receipt Date: 20120705
  Transmission Date: 20120928
  Serious: Yes (Hospitalization, Other)
  Sender: FDA-Public Use
  Company Number: US-ASTRAZENECA-2010SE37063

PATIENT
  Age: 63 Year
  Sex: Male
  Weight: 70.3 kg

DRUGS (14)
  1. NEXIUM [Suspect]
     Indication: GASTROOESOPHAGEAL REFLUX DISEASE
     Route: 048
     Dates: start: 20050101
  2. OMEPRAZOLE [Concomitant]
     Route: 048
  3. ALBUTEROL [Concomitant]
  4. PRAVASTATIN [Concomitant]
  5. FLUOXETINE HCL [Concomitant]
  6. METFORMIN HYDROCHLORIDE [Concomitant]
  7. SYMBICORT [Suspect]
     Indication: CHRONIC OBSTRUCTIVE PULMONARY DISEASE
     Dosage: 320 MCG: 160/4.5 MCG,TWO TIMES A DAY
     Route: 055
     Dates: start: 20080101
  8. PROVENTIL [Concomitant]
  9. CYCLOBENZAPRINE [Concomitant]
  10. SPIRIVA [Concomitant]
  11. TRAZODONE HCL [Concomitant]
  12. FAMOTIDINE [Concomitant]
  13. LISINOPRIL [Concomitant]
     Route: 048
  14. ADVAIR DISKUS 100/50 [Concomitant]

REACTIONS (4)
  - WHITE BLOOD CELL COUNT DECREASED [None]
  - DYSPEPSIA [None]
  - TONSIL CANCER [None]
  - NEOPLASM MALIGNANT [None]
